FAERS Safety Report 4863937-5 (Version None)
Quarter: 2005Q4

REPORT INFORMATION
  Report Type: 
  Country: None (occurrence: None)
  Receive Date: 20051222
  Receipt Date: 20051215
  Transmission Date: 20060501
  Serious: Yes (Hospitalization, Other)
  Sender: FDA-Public Use
  Company Number: CA-JNJFOC-20041005776

PATIENT
  Sex: Female
  Weight: 74 kg

DRUGS (4)
  1. REMICADE [Suspect]
     Route: 042
  2. REMICADE [Suspect]
     Indication: CROHN'S DISEASE
     Route: 042
  3. PRUINETHOL [Concomitant]
     Indication: CROHN'S DISEASE
  4. URSO FALK [Concomitant]

REACTIONS (1)
  - METABOLIC ENCEPHALOPATHY [None]
